FAERS Safety Report 8011230-4 (Version None)
Quarter: 2011Q4

REPORT INFORMATION
  Report Type: 
  Country: None (occurrence: None)
  Receive Date: 20111227
  Receipt Date: 20111227
  Transmission Date: 20120403
  Serious: No
  Sender: FDA-Public Use
  Company Number: None

PATIENT
  Age: 36 Year
  Sex: Female
  Weight: 47.627 kg

DRUGS (1)
  1. COMPOUND W WART REMOVER [Suspect]
     Indication: SKIN PAPILLOMA
     Dosage: ONE INVISIBLE STRIP
     Route: 061
     Dates: start: 20111126, end: 20111203

REACTIONS (7)
  - CHEMICAL INJURY [None]
  - PRURITUS [None]
  - APPLICATION SITE DISCOLOURATION [None]
  - PRODUCT QUALITY ISSUE [None]
  - SKIN EXFOLIATION [None]
  - PAIN IN EXTREMITY [None]
  - SKIN FISSURES [None]
